FAERS Safety Report 5974895-4 (Version None)
Quarter: 2008Q4

REPORT INFORMATION
  Report Type: 
  Country: None (occurrence: None)
  Receive Date: 20081202
  Receipt Date: 20081121
  Transmission Date: 20090506
  Serious: Yes (Hospitalization)
  Sender: FDA-Public Use
  Company Number: FR-PFIZER INC-2008099961

PATIENT
  Sex: Female

DRUGS (7)
  1. DALACINE [Suspect]
     Indication: OSTEOARTHRITIS
     Route: 048
     Dates: start: 20080919, end: 20081003
  2. AUGMENTIN '125' [Suspect]
     Indication: OSTEOARTHRITIS
     Route: 048
     Dates: start: 20080818, end: 20080918
  3. CIPROFLOXACIN HYDROCHLORIDE [Suspect]
     Indication: OSTEOARTHRITIS
     Route: 048
     Dates: start: 20080919, end: 20081003
  4. NEXIUM [Suspect]
     Indication: GASTROOESOPHAGEAL REFLUX DISEASE
     Route: 048
     Dates: start: 20080818, end: 20081008
  5. ALDACTAZINE [Concomitant]
  6. ATENOLOL [Concomitant]
  7. LEVOTHYROX [Concomitant]

REACTIONS (1)
  - CHOLANGITIS [None]
